FAERS Safety Report 9302248 (Version 1)
Quarter: 2013Q2

REPORT INFORMATION
  Report Type: Spontaneous
  Country: ES (occurrence: ES)
  Receive Date: 20130522
  Receipt Date: 20130522
  Transmission Date: 20140414
  Serious: Yes (Hospitalization, Other)
  Sender: FDA-Public Use
  Company Number: ES-ROCHE-1226799

PATIENT
  Age: 71 Year
  Sex: Male

DRUGS (1)
  1. ACTILYSE [Suspect]
     Indication: CEREBROVASCULAR DISORDER
     Route: 040
     Dates: start: 20080312, end: 20080312

REACTIONS (2)
  - Herpes simplex meningoencephalitis [Recovered/Resolved]
  - Haemorrhage intracranial [Recovered/Resolved]
